FAERS Safety Report 9325432 (Version 1)
Quarter: 2013Q2

REPORT INFORMATION
  Report Type: Spontaneous
  Country: US (occurrence: None)
  Receive Date: 20130531
  Receipt Date: 20130531
  Transmission Date: 20140414
  Serious: Yes (Hospitalization)
  Sender: FDA-Public Use
  Company Number: None

PATIENT
  Age: 67 Year
  Sex: Male
  Weight: 113.6 kg

DRUGS (1)
  1. ENALAPRIL [Suspect]
     Indication: HYPERTENSION
     Route: 048
     Dates: start: 20041102, end: 20130522

REACTIONS (1)
  - Angioedema [None]
